FAERS Safety Report 5662754-6 (Version None)
Quarter: 2008Q1

REPORT INFORMATION
  Report Type: 
  Country: None (occurrence: None)
  Receive Date: 20080311
  Receipt Date: 20080311
  Transmission Date: 20080703
  Serious: Yes (Other)
  Sender: FDA-Public Use
  Company Number: None

PATIENT
  Age: 60 Year
  Sex: Male
  Weight: 68.9467 kg

DRUGS (1)
  1. ATENOLOL [Suspect]
     Indication: MYOCARDIAL INFARCTION
     Dosage: 1 TABLET DAILY PO
     Route: 048
     Dates: start: 20080101, end: 20080306

REACTIONS (4)
  - ASTHENIA [None]
  - BLOOD PRESSURE ABNORMAL [None]
  - EXTRASYSTOLES [None]
  - PHARMACEUTICAL PRODUCT COMPLAINT [None]
